FAERS Safety Report 6795343-0 (Version None)
Quarter: 2010Q2

REPORT INFORMATION
  Report Type: 
  Country: None (occurrence: None)
  Receive Date: 20100625
  Receipt Date: 20100621
  Transmission Date: 20101027
  Serious: Yes (Life-Threatening)
  Sender: FDA-Public Use
  Company Number: JP-WYE-H15644610

PATIENT
  Sex: Male

DRUGS (3)
  1. ZOSYN [Suspect]
     Indication: PNEUMONIA
     Route: 041
     Dates: start: 20091226, end: 20100105
  2. PAZUCROSS [Concomitant]
     Indication: PNEUMONIA
     Route: 041
     Dates: start: 20091222, end: 20091225
  3. MEROPEN [Concomitant]
     Indication: PNEUMONIA
     Route: 041
     Dates: start: 20091217, end: 20091221

REACTIONS (1)
  - PANCYTOPENIA [None]
